FAERS Safety Report 13671755 (Version 1)
Quarter: 2017Q2

REPORT INFORMATION
  Report Type: Spontaneous
  Country: US (occurrence: US)
  Receive Date: 20170620
  Receipt Date: 20170620
  Transmission Date: 20170830
  Serious: No
  Sender: FDA-Public Use
  Company Number: US-ACTELION-A-NJ2017-155583

PATIENT
  Sex: Female

DRUGS (4)
  1. TYVASO [Suspect]
     Active Substance: TREPROSTINIL
     Indication: PULMONARY ARTERIAL HYPERTENSION
     Dosage: 12 MCG, 5 TIMES A DAY
     Route: 055
     Dates: start: 201207
  2. TYVASO [Suspect]
     Active Substance: TREPROSTINIL
     Indication: COR PULMONALE
     Dosage: 6 MCG, 5 TIMES A DAY
     Route: 055
     Dates: start: 20121106
  3. TYVASO [Suspect]
     Active Substance: TREPROSTINIL
     Dosage: 54MCG, 5 TIMES A DAY
     Route: 055
     Dates: start: 20121106
  4. UPTRAVI [Suspect]
     Active Substance: SELEXIPAG
     Indication: PULMONARY ARTERIAL HYPERTENSION
     Dosage: 1600 MCG, BID
     Route: 048

REACTIONS (4)
  - Dyspnoea [Unknown]
  - Arthralgia [Recovering/Resolving]
  - Off label use [Unknown]
  - Headache [Unknown]

NARRATIVE: CASE EVENT DATE: 20170523
